FAERS Safety Report 11067524 (Version 1)
Quarter: 2015Q2

REPORT INFORMATION
  Report Type: Spontaneous
  Country: US (occurrence: US)
  Receive Date: 20150427
  Receipt Date: 20150427
  Transmission Date: 20150821
  Serious: No
  Sender: FDA-Public Use
  Company Number: US-TEVA-506022USA

PATIENT
  Age: 68 Year
  Sex: Female

DRUGS (1)
  1. CEFALEXIN [Suspect]
     Active Substance: CEPHALEXIN
     Dosage: 1000 MILLIGRAM DAILY;
     Dates: start: 20140211

REACTIONS (4)
  - Tongue discolouration [Not Recovered/Not Resolved]
  - Tongue disorder [Not Recovered/Not Resolved]
  - Candida infection [Not Recovered/Not Resolved]
  - Glossitis [Not Recovered/Not Resolved]
